FAERS Safety Report 24025223 (Version 1)
Quarter: 2024Q2

REPORT INFORMATION
  Report Type: Spontaneous
  Country: US (occurrence: US)
  Receive Date: 20240628
  Receipt Date: 20240628
  Transmission Date: 20240716
  Serious: No
  Sender: FDA-Public Use
  Company Number: US-AUROBINDO-AUR-APL-2023-061920

PATIENT
  Age: 51 Year
  Sex: Female
  Weight: 68 kg

DRUGS (2)
  1. AZELASTINE HYDROCHLORIDE [Suspect]
     Active Substance: AZELASTINE HYDROCHLORIDE
     Indication: Hypersensitivity
     Dosage: 01 SPRAY TWICE A DAY (ONCE IN THE MORNING AND ONCE IN THE NIGHT)
     Route: 045
  2. IPRATROPIUM [Concomitant]
     Active Substance: IPRATROPIUM
     Indication: Product used for unknown indication
     Dosage: UNK
     Route: 065

REACTIONS (3)
  - Nasal congestion [Unknown]
  - Product dose omission issue [Unknown]
  - Product container seal issue [Unknown]
